FAERS Safety Report 22593716 (Version 1)
Quarter: 2023Q2

REPORT INFORMATION
  Report Type: Spontaneous
  Country: AR (occurrence: AR)
  Receive Date: 20230613
  Receipt Date: 20230613
  Transmission Date: 20230721
  Serious: Yes (Death, Other)
  Sender: FDA-Public Use
  Company Number: AR-GLAXOSMITHKLINE-AR2023AMR080911

PATIENT

DRUGS (1)
  1. NUCALA [Suspect]
     Active Substance: MEPOLIZUMAB
     Indication: Asthma
     Dosage: 100 MG
     Dates: start: 20210723, end: 20230603

REACTIONS (3)
  - Pneumonia [Fatal]
  - Dyspnoea [Fatal]
  - Bronchiolitis [Unknown]

NARRATIVE: CASE EVENT DATE: 20230501
